FAERS Safety Report 6893932-6 (Version None)
Quarter: 2010Q3

REPORT INFORMATION
  Report Type: 
  Country: None (occurrence: None)
  Receive Date: 20100802
  Receipt Date: 20100726
  Transmission Date: 20110219
  Serious: No
  Sender: FDA-Public Use
  Company Number: US-BIOGENIDEC-2010BI025922

PATIENT
  Age: 25 Year
  Sex: Female

DRUGS (2)
  1. TYSABRI [Suspect]
     Indication: MULTIPLE SCLEROSIS
     Route: 042
     Dates: start: 20080512, end: 20081230
  2. TYSABRI [Suspect]
     Route: 042
     Dates: start: 20090903

REACTIONS (3)
  - DIZZINESS [None]
  - GENERAL SYMPTOM [None]
  - NAUSEA [None]
